FAERS Safety Report 24637001 (Version 1)
Quarter: 2024Q4

REPORT INFORMATION
  Report Type: Spontaneous
  Country: PL (occurrence: PL)
  Receive Date: 20241119
  Receipt Date: 20241119
  Transmission Date: 20250115
  Serious: Yes (Other)
  Sender: OXFORD PHARMACEUTICALS, LLC
  Company Number: PL-Oxford Pharmaceuticals, LLC-2165348

PATIENT
  Age: 61 Year
  Sex: Female

DRUGS (5)
  1. SERTRALINE HYDROCHLORIDE [Suspect]
     Active Substance: SERTRALINE HYDROCHLORIDE
     Indication: Product used for unknown indication
  2. OXYCODONE [Suspect]
     Active Substance: OXYCODONE
  3. ACETAMINOPHEN [Suspect]
     Active Substance: ACETAMINOPHEN
  4. GABAPENTIN [Suspect]
     Active Substance: GABAPENTIN
  5. METAMIZOLE [Suspect]
     Active Substance: METAMIZOLE

REACTIONS (4)
  - Drug interaction [Unknown]
  - Panic attack [Unknown]
  - Disorientation [Unknown]
  - Ventricular tachycardia [Unknown]
